FAERS Safety Report 6644276-9 (Version None)
Quarter: 2010Q1

REPORT INFORMATION
  Report Type: 
  Country: None (occurrence: None)
  Receive Date: 20100319
  Receipt Date: 20100319
  Transmission Date: 20100710
  Serious: Yes (Hospitalization)
  Sender: FDA-Public Use
  Company Number: None

PATIENT
  Age: 91 Year
  Weight: 56.36 kg

DRUGS (12)
  1. COUMADIN [Suspect]
     Indication: CORONARY ARTERY DISEASE
     Dosage: PO  (CHRONIC)
     Route: 048
  2. CALCIUM/VIT D [Concomitant]
  3. SYNTHROID [Concomitant]
  4. M.V.I. [Concomitant]
  5. FOSAMAX [Concomitant]
  6. SPIRONOLACTONE [Concomitant]
  7. TOPROL-XL [Concomitant]
  8. AMLODIPINE [Concomitant]
  9. METFORMIN HCL [Concomitant]
  10. XALATAN [Concomitant]
  11. RESTASIS [Concomitant]
  12. . [Concomitant]

REACTIONS (4)
  - DYSGRAPHIA [None]
  - LETHARGY [None]
  - SUBDURAL HAEMATOMA [None]
  - TREMOR [None]
